FAERS Safety Report 9293850 (Version 1)
Quarter: 2013Q2

REPORT INFORMATION
  Report Type: Spontaneous
  Country: RO (occurrence: RO)
  Receive Date: 20130516
  Receipt Date: 20130516
  Transmission Date: 20140414
  Serious: Yes (Hospitalization)
  Sender: FDA-Public Use
  Company Number: RO-ABBOTT-13P-135-1088329-00

PATIENT
  Sex: 0

DRUGS (1)
  1. HUMIRA [Suspect]
     Indication: EXPOSURE VIA BODY FLUID
     Route: 050

REACTIONS (7)
  - Bronchitis [Unknown]
  - Gastroenteritis [Unknown]
  - Foetal exposure during pregnancy [Unknown]
  - Paternal drugs affecting foetus [Unknown]
  - Dermatitis allergic [Recovered/Resolved]
  - Conjunctivitis [Recovered/Resolved]
  - Upper respiratory tract infection [Unknown]
